FAERS Safety Report 18104142 (Version 1)
Quarter: 2020Q3

REPORT INFORMATION
  Report Type: Spontaneous
  Country: US (occurrence: US)
  Receive Date: 20200802
  Receipt Date: 20200802
  Transmission Date: 20201103
  Serious: Yes (Disabling, Other)
  Sender: FDA-Public Use
  Company Number: None

PATIENT
  Age: 41 Year
  Sex: Female
  Weight: 74.25 kg

DRUGS (8)
  1. CIPROFLOXACIN HCL 500 MG TAB [Suspect]
     Active Substance: CIPROFLOXACIN HYDROCHLORIDE
     Indication: URINARY TRACT INFECTION
     Dosage: ?          QUANTITY:1 TABLET(S);?
     Route: 048
  2. VITAMIN D3 [Concomitant]
     Active Substance: CHOLECALCIFEROL
  3. TUMERIC [Concomitant]
     Active Substance: HERBALS\TURMERIC
  4. FOLIC ACID. [Concomitant]
     Active Substance: FOLIC ACID
  5. LYSINE [Concomitant]
     Active Substance: LYSINE
  6. VITAMIN B12 [Concomitant]
     Active Substance: CYANOCOBALAMIN
  7. MAGNESIUM [Concomitant]
     Active Substance: MAGNESIUM
  8. BIOTIN [Concomitant]
     Active Substance: BIOTIN

REACTIONS (20)
  - Vertigo [None]
  - Suicide attempt [None]
  - Partner stress [None]
  - Bursitis [None]
  - Osteoarthritis [None]
  - Muscle rupture [None]
  - Epicondylitis [None]
  - Myalgia [None]
  - Gait inability [None]
  - Depression [None]
  - Chest pain [None]
  - Bedridden [None]
  - Arthralgia [None]
  - Muscle twitching [None]
  - Anhedonia [None]
  - Suicidal ideation [None]
  - Tendon disorder [None]
  - Vestibular migraine [None]
  - Cartilage injury [None]
  - Anxiety [None]

NARRATIVE: CASE EVENT DATE: 20101015
